FAERS Safety Report 6324804-3 (Version None)
Quarter: 2009Q3

REPORT INFORMATION
  Report Type: 
  Country: None (occurrence: None)
  Receive Date: 20090824
  Receipt Date: 20090624
  Transmission Date: 20100115
  Serious: No
  Sender: FDA-Public Use
  Company Number: US-ABBOTT-09P-163-0581993-00

PATIENT
  Sex: Female
  Weight: 86.26 kg

DRUGS (6)
  1. NIASPAN [Suspect]
     Indication: BLOOD TRIGLYCERIDES INCREASED
     Route: 048
     Dates: start: 20090611, end: 20090621
  2. NIASPAN [Suspect]
     Dates: start: 20090623
  3. JANUMET [Concomitant]
     Indication: DRUG USE FOR UNKNOWN INDICATION
     Dates: start: 20090611, end: 20090620
  4. JANUMET [Concomitant]
     Dates: start: 20090623
  5. BENICAR [Concomitant]
     Indication: DRUG USE FOR UNKNOWN INDICATION
     Dates: end: 20090620
  6. BENICAR [Concomitant]
     Dates: start: 20090623

REACTIONS (1)
  - DIARRHOEA [None]
